FAERS Safety Report 7571924-1 (Version None)
Quarter: 2011Q2

REPORT INFORMATION
  Report Type: 
  Country: None (occurrence: None)
  Receive Date: 20110624
  Receipt Date: 20101215
  Transmission Date: 20111010
  Serious: No
  Sender: FDA-Public Use
  Company Number: A0900750A

PATIENT
  Sex: Male

DRUGS (1)
  1. VERAMYST [Suspect]

REACTIONS (3)
  - TREATMENT NONCOMPLIANCE [None]
  - ANXIETY [None]
  - PRODUCT QUALITY ISSUE [None]
